FAERS Safety Report 8847850 (Version 3)
Quarter: 2012Q4

REPORT INFORMATION
  Report Type: Report from Study
  Country: US (occurrence: US)
  Receive Date: 20121018
  Receipt Date: 20121127
  Transmission Date: 20130627
  Serious: Yes (Congenital Anomaly)
  Sender: FDA-Public Use
  Company Number: US-JNJFOC-20121008137

PATIENT
  Age: 29 Year
  Sex: Female

DRUGS (9)
  1. PREZISTA [Suspect]
     Indication: HIV INFECTION
     Route: 048
     Dates: start: 20120620
  2. PCP [Suspect]
     Indication: PRODUCT USED FOR UNKNOWN INDICATION
  3. BENZODIAZEPINES NOS [Suspect]
     Indication: PRODUCT USED FOR UNKNOWN INDICATION
  4. OPIATES [Suspect]
     Indication: PRODUCT USED FOR UNKNOWN INDICATION
  5. TRUVADA [Concomitant]
     Route: 048
     Dates: start: 20120620
  6. NORVIR [Concomitant]
     Route: 048
     Dates: start: 20120620
  7. RETROVIR [Concomitant]
     Route: 042
     Dates: start: 20120915, end: 20120915
  8. RETROVIR [Concomitant]
     Route: 042
     Dates: start: 20120915, end: 20120915
  9. TRIMETHOPRIM-SULFAMETHOXAZOLE [Concomitant]

REACTIONS (3)
  - Premature delivery [Unknown]
  - Substance abuse [Unknown]
  - Exposure during pregnancy [Unknown]
